FAERS Safety Report 10218312 (Version 1)
Quarter: 2014Q2

REPORT INFORMATION
  Report Type: Spontaneous
  Country: AU (occurrence: AU)
  Receive Date: 20140605
  Receipt Date: 20140605
  Transmission Date: 20141212
  Serious: Yes (Death, Other)
  Sender: FDA-Public Use
  Company Number: AU-ROCHE-1410552

PATIENT
  Age: 60 Year
  Sex: Male

DRUGS (4)
  1. PEGASYS [Suspect]
     Indication: CHRONIC HEPATITIS C
     Route: 058
     Dates: start: 20130607, end: 20140509
  2. RIBAVIRIN [Suspect]
     Indication: CHRONIC HEPATITIS C
     Route: 048
     Dates: start: 20130607, end: 20140509
  3. TELAPREVIR [Suspect]
     Indication: CHRONIC HEPATITIS C
     Route: 048
     Dates: start: 20130607, end: 20130830
  4. CITALOPRAM [Concomitant]
     Indication: MOOD ALTERED
     Route: 048
     Dates: start: 20130718, end: 20140509

REACTIONS (5)
  - Atypical pneumonia [Fatal]
  - Motor neurone disease [Unknown]
  - Ascites [Unknown]
  - Pulmonary oedema [Unknown]
  - Atelectasis [Unknown]
